FAERS Safety Report 8549783-X (Version None)
Quarter: 2012Q3

REPORT INFORMATION
  Report Type: 
  Country: None (occurrence: None)
  Receive Date: 20120730
  Receipt Date: 20120718
  Transmission Date: 20120928
  Serious: Yes (Other)
  Sender: FDA-Public Use
  Company Number: ES-ALLERGAN-1210004US

PATIENT
  Age: 44 Year
  Sex: Male

DRUGS (1)
  1. VISCOFRESHA? 0.5% COLIRIO EN SOLUCI??N [Suspect]
     Indication: EYE PAIN
     Dosage: UNK
     Route: 047

REACTIONS (3)
  - URTICARIA [None]
  - PERIORBITAL OEDEMA [None]
  - CONJUNCTIVAL HYPERAEMIA [None]
